FAERS Safety Report 7132364-2 (Version None)
Quarter: 2010Q4

REPORT INFORMATION
  Report Type: 
  Country: None (occurrence: None)
  Receive Date: 20101129
  Receipt Date: 20101129
  Transmission Date: 20110411
  Serious: Yes (Life-Threatening, Hospitalization)
  Sender: FDA-Public Use
  Company Number: None

PATIENT
  Age: 78 Year
  Sex: Female
  Weight: 74.8435 kg

DRUGS (1)
  1. METOPROLOL TARTA 50 MG [Suspect]
     Indication: HYPERTENSION
     Dosage: 50 MG 1 TAB 2/DAILY ORAL
     Route: 048
     Dates: start: 20090101, end: 20100101

REACTIONS (7)
  - BLOOD PRESSURE FLUCTUATION [None]
  - CARDIAC ARREST [None]
  - DYSPNOEA [None]
  - FATIGUE [None]
  - HEART RATE INCREASED [None]
  - HEART RATE IRREGULAR [None]
  - VISUAL IMPAIRMENT [None]
